FAERS Safety Report 9886268 (Version 2)
Quarter: 2014Q1

REPORT INFORMATION
  Report Type: Spontaneous
  Country: US (occurrence: US)
  Receive Date: 20140210
  Receipt Date: 20140210
  Transmission Date: 20141002
  Serious: No
  Sender: FDA-Public Use
  Company Number: US-BAXTER-2014BAX004281

PATIENT
  Age: 66 Year
  Sex: Female
  Weight: 66 kg

DRUGS (15)
  1. DIANEAL LOW CALCIUM [Suspect]
     Indication: RENAL FAILURE CHRONIC
     Route: 033
     Dates: start: 20140110
  2. DIANEAL LOW CALCIUM [Suspect]
     Dosage: LAST FILL
     Route: 033
     Dates: start: 20140110
  3. DIANEAL LOW CALCIUM [Suspect]
     Route: 033
     Dates: start: 20140114
  4. DIANEAL LOW CALCIUM [Suspect]
     Route: 033
     Dates: start: 20140115
  5. DIANEAL LOW CALCIUM [Suspect]
     Route: 033
     Dates: start: 20140117
  6. DIANEAL LOW CALCIUM [Suspect]
     Indication: RENAL FAILURE CHRONIC
     Route: 033
     Dates: start: 20140110
  7. DIANEAL LOW CALCIUM [Suspect]
     Dosage: LAST FILL
     Route: 033
     Dates: start: 20140110
  8. DIANEAL LOW CALCIUM [Suspect]
     Route: 033
     Dates: start: 20140114
  9. DIANEAL LOW CALCIUM [Suspect]
     Route: 033
     Dates: start: 20140115
  10. DIANEAL LOW CALCIUM [Suspect]
     Route: 033
     Dates: start: 20140117
  11. DIANEAL LOW CALCIUM (ULTRABAG) [Suspect]
     Indication: RENAL FAILURE CHRONIC
     Route: 033
     Dates: start: 20140110
  12. DIANEAL LOW CALCIUM (ULTRABAG) [Suspect]
     Dosage: LAST FILL
     Route: 033
     Dates: start: 20140110
  13. DIANEAL LOW CALCIUM (ULTRABAG) [Suspect]
     Route: 033
     Dates: start: 20140114
  14. DIANEAL LOW CALCIUM (ULTRABAG) [Suspect]
     Route: 033
     Dates: start: 20140115
  15. DIANEAL LOW CALCIUM (ULTRABAG) [Suspect]
     Route: 033
     Dates: start: 20140117

REACTIONS (4)
  - Abdominal distension [Recovering/Resolving]
  - Discomfort [Recovering/Resolving]
  - Procedural pain [Recovering/Resolving]
  - Musculoskeletal pain [Recovering/Resolving]
